FAERS Safety Report 4823660-X (Version None)
Quarter: 2005Q4

REPORT INFORMATION
  Report Type: 
  Country: None (occurrence: None)
  Receive Date: 20051109
  Receipt Date: 20051031
  Transmission Date: 20060501
  Serious: Yes (Disabling)
  Sender: FDA-Public Use
  Company Number: DE-GLAXOSMITHKLINE-B0399524A

PATIENT
  Age: 42 Year
  Sex: Male

DRUGS (4)
  1. ZIDOVUDINE [Suspect]
     Indication: HIV INFECTION
     Dosage: 600MG PER DAY
     Route: 065
  2. LAMIVUDINE [Suspect]
     Indication: HIV INFECTION
     Dosage: 300MG PER DAY
     Route: 065
  3. LOPINAVIR + RITONAVIR [Suspect]
     Indication: HIV INFECTION
     Route: 065
  4. CIDOFOVIR [Concomitant]
     Route: 065

REACTIONS (7)
  - CEREBELLAR SYNDROME [None]
  - CONDITION AGGRAVATED [None]
  - GAIT DISTURBANCE [None]
  - IMMUNE RECONSTITUTION SYNDROME [None]
  - NAUSEA [None]
  - TREMOR [None]
  - VERTIGO [None]
